FAERS Safety Report 23548693 (Version 1)
Quarter: 2024Q1

REPORT INFORMATION
  Report Type: Report from Study
  Country: GB (occurrence: GB)
  Receive Date: 20240221
  Receipt Date: 20240221
  Transmission Date: 20240410
  Serious: Yes (Other)
  Sender: FDA-Public Use
  Company Number: GB-002147023-NVSC2024GB036516

PATIENT
  Sex: Female

DRUGS (1)
  1. KESIMPTA [Suspect]
     Active Substance: OFATUMUMAB
     Indication: Relapsing-remitting multiple sclerosis
     Dosage: 20 MG, QMO
     Route: 058
     Dates: start: 20231018

REACTIONS (3)
  - Lower respiratory tract infection [Recovering/Resolving]
  - Cough [Recovering/Resolving]
  - Lethargy [Recovering/Resolving]

NARRATIVE: CASE EVENT DATE: 20240101
